FAERS Safety Report 16941319 (Version 1)
Quarter: 2019Q4

REPORT INFORMATION
  Report Type: Spontaneous
  Country: US (occurrence: US)
  Receive Date: 20190829
  Receipt Date: 20190829
  Transmission Date: 20200122
  Serious: Yes (Hospitalization)
  Sender: FDA-Public Use
  Company Number: None

PATIENT
  Sex: Female

DRUGS (8)
  1. LEXAPRO [Concomitant]
     Active Substance: ESCITALOPRAM OXALATE
  2. DIOVAN [Concomitant]
     Active Substance: VALSARTAN
  3. HUMIRA [Suspect]
     Active Substance: ADALIMUMAB
     Indication: RHEUMATOID ARTHRITIS
     Route: 058
     Dates: start: 20151026
  4. VITAMIN D3 [Concomitant]
     Active Substance: CHOLECALCIFEROL
  5. NEXIUM [Concomitant]
     Active Substance: ESOMEPRAZOLE MAGNESIUM
  6. K-TAB [Concomitant]
     Active Substance: POTASSIUM CHLORIDE
  7. SPIRONOLACIONE TAB [Concomitant]
  8. PHYENYTOIN EX [Concomitant]

REACTIONS (3)
  - Infection [None]
  - Therapy cessation [None]
  - Fall [None]
